FAERS Safety Report 5215380-7 (Version None)
Quarter: 2007Q1

REPORT INFORMATION
  Report Type: 
  Country: None (occurrence: None)
  Receive Date: 20070116
  Receipt Date: 20070105
  Transmission Date: 20070707
  Serious: Yes (Life-Threatening, Other)
  Sender: FDA-Public Use
  Company Number: 061128-0001057

PATIENT
  Age: 3 Day
  Sex: Male

DRUGS (1)
  1. INDOMETHACIN [Suspect]
     Indication: PATENT DUCTUS ARTERIOSUS
     Dosage: 0.1 MG; QD; IV
     Route: 042
     Dates: start: 20050529, end: 20050529

REACTIONS (6)
  - ANAEMIA [None]
  - HAEMORRHAGE INTRACRANIAL [None]
  - HEPATIC HAEMORRHAGE [None]
  - HYDROCEPHALUS [None]
  - INFANTILE SPASMS [None]
  - THROMBOCYTOPENIA [None]
